FAERS Safety Report 5367202-1 (Version None)
Quarter: 2007Q2

REPORT INFORMATION
  Report Type: 
  Country: None (occurrence: None)
  Receive Date: 20070622
  Receipt Date: 20070613
  Transmission Date: 20071010
  Serious: Yes (Hospitalization)
  Sender: FDA-Public Use
  Company Number: GB-ROCHE-496031

PATIENT
  Age: 62 Year
  Sex: Female
  Weight: 79 kg

DRUGS (12)
  1. XENICAL [Suspect]
     Indication: OBESITY
     Route: 048
     Dates: start: 20070328
  2. XENICAL [Suspect]
     Route: 048
  3. ISOSORBIDE MONONITRATE [Concomitant]
     Indication: HYPERTENSION
     Route: 048
  4. ASPIRIN [Concomitant]
     Indication: HYPERTENSION
     Route: 048
  5. CLOPIDOGREL [Concomitant]
     Indication: ANGINA PECTORIS
     Route: 048
  6. BISOPROLOL FUMARATE [Concomitant]
     Indication: HYPERTENSION
     Route: 048
  7. CO-AMILOFRUSE [Concomitant]
     Indication: HYPERTENSION
     Route: 048
  8. EZETIMIBE [Concomitant]
     Route: 048
  9. NICORANDIL [Concomitant]
     Indication: HYPERTENSION
     Route: 048
  10. QUININE SULFATE [Concomitant]
     Route: 048
  11. GTN SPRAY [Concomitant]
     Indication: ANGINA PECTORIS
     Route: 060
  12. RAMIPRIL [Concomitant]
     Indication: HYPERTENSION
     Route: 048

REACTIONS (1)
  - ANGINA PECTORIS [None]
